FAERS Safety Report 9119909 (Version 1)
Quarter: 2013Q1

REPORT INFORMATION
  Report Type: Spontaneous
  Country: BR (occurrence: BR)
  Receive Date: 20130226
  Receipt Date: 20130226
  Transmission Date: 20140127
  Serious: Yes (Other)
  Sender: FDA-Public Use
  Company Number: PHHY2012BR066933

PATIENT
  Sex: Female

DRUGS (4)
  1. DIOVAN HCT [Suspect]
     Indication: BLOOD PRESSURE ABNORMAL
     Dosage: 1 DF (160 MG VALS/12.5 MG HCTZ), DAILY
     Route: 048
     Dates: end: 2012
  2. ATENSINA [Concomitant]
     Indication: BLOOD PRESSURE ABNORMAL
     Dosage: 2 DF, DAILY (150 MG)
     Route: 048
  3. PRESSAT [Concomitant]
     Indication: BLOOD PRESSURE ABNORMAL
     Dosage: 1 DF, DAILY
     Route: 048
     Dates: start: 2012
  4. PASALIX [Concomitant]
     Indication: BLOOD PRESSURE ABNORMAL
     Dosage: 6 DF, DAILY
     Route: 048

REACTIONS (2)
  - Cataract [Not Recovered/Not Resolved]
  - Visual acuity reduced [Not Recovered/Not Resolved]
